FAERS Safety Report 4626780-8 (Version None)
Quarter: 2005Q2

REPORT INFORMATION
  Report Type: 
  Country: None (occurrence: None)
  Receive Date: 20050405
  Receipt Date: 20050321
  Transmission Date: 20051028
  Serious: Yes (Life-Threatening, Hospitalization)
  Sender: FDA-Public Use
  Company Number: US-KINGPHARMUSA00001-K200500392

PATIENT
  Age: 48 Year
  Sex: Male

DRUGS (3)
  1. ALTACE [Suspect]
     Dosage: 10 MG, QD
     Route: 048
     Dates: start: 20020901, end: 20050129
  2. ATACAND [Suspect]
     Indication: HYPERTENSION
     Dosage: 16 MG, QD
     Route: 048
     Dates: start: 20000101, end: 20050129
  3. NEBILET [Concomitant]
     Dosage: 5 MG, UNK
     Dates: start: 20031001

REACTIONS (2)
  - FATIGUE [None]
  - HYPERTENSION [None]
